FAERS Safety Report 8943479 (Version 1)
Quarter: 2012Q4

REPORT INFORMATION
  Report Type: 
  Country: US (occurrence: US)
  Receive Date: 20121204
  Receipt Date: 20121204
  Transmission Date: 20130627
  Serious: No
  Sender: FDA-Public Use
  Company Number: US-PFIZER INC-2012299474

PATIENT
  Age: 58 Year
  Sex: Female
  Weight: 81.63 kg

DRUGS (5)
  1. DETROL LA [Suspect]
     Indication: URINARY FREQUENCY
     Dosage: 4 mg, 2x/day
  2. DETROL LA [Suspect]
     Dosage: 4 mg, 1x/day
  3. BETASERON [Concomitant]
     Indication: MULTIPLE SCLEROSIS
     Dosage: 0.3 mg, alternate day
  4. LISINOPRIL [Concomitant]
     Indication: HYPERTENSION
     Dosage: 12.5 mg, daily
  5. AMANTADINE [Concomitant]
     Indication: FATIGUE
     Dosage: 100 mg, 2x/day

REACTIONS (2)
  - Off label use [Unknown]
  - Dry mouth [Recovered/Resolved]
